FAERS Safety Report 18798366 (Version 1)
Quarter: 2021Q1

REPORT INFORMATION
  Report Type: Spontaneous
  Country: US (occurrence: US)
  Receive Date: 20210127
  Receipt Date: 20210127
  Transmission Date: 20210419
  Serious: No
  Sender: FDA-Public Use
  Company Number: None

PATIENT
  Age: 62 Year
  Sex: Female

DRUGS (1)
  1. HUMIRA [Suspect]
     Active Substance: ADALIMUMAB
     Indication: UVEITIS
     Dosage: INJECT 80MG (2 PENS) ON DAY 1, 40MG (1 PEN) ?SUBCUTANEOUSLY ON DAY 8, THEN 40MG EVERY OTHER
     Route: 058
     Dates: start: 202008

REACTIONS (1)
  - Coronavirus test positive [None]
